FAERS Safety Report 4332121-6 (Version None)
Quarter: 2004Q1

REPORT INFORMATION
  Report Type: 
  Country: None (occurrence: None)
  Receive Date: 20040331
  Receipt Date: 20030905
  Transmission Date: 20041129
  Serious: Yes (Other)
  Sender: FDA-Public Use
  Company Number: BE-JNJFOC-20040304147

PATIENT
  Sex: Male

DRUGS (1)
  1. CISAPRIDE (CISAPRIDE) SUSPENSION [Suspect]
     Indication: GASTROOESOPHAGEAL REFLUX DISEASE
     Dosage: 1.2 MG, 4 IN 1 DAY, UNKNOWN
     Dates: start: 20030530, end: 20030610

REACTIONS (2)
  - DRUG INEFFECTIVE [None]
  - FUNDOPLICATION [None]
